FAERS Safety Report 6391115-X (Version None)
Quarter: 2009Q4

REPORT INFORMATION
  Report Type: 
  Country: None (occurrence: None)
  Receive Date: 20091005
  Receipt Date: 20090922
  Transmission Date: 20100525
  Serious: Yes (Hospitalization)
  Sender: FDA-Public Use
  Company Number: 2009-03682

PATIENT
  Age: 75 Year
  Sex: Male
  Weight: 90.2 kg

DRUGS (15)
  1. VELCADE [Suspect]
     Indication: MULTIPLE MYELOMA
     Dosage: 2.7 MG, INTRAVENOUS
     Route: 042
     Dates: start: 20090818, end: 20090828
  2. THALIDOMIDE [Suspect]
     Indication: MULTIPLE MYELOMA
     Dosage: 100 MG, ORAL
     Route: 048
     Dates: start: 20090819, end: 20090907
  3. DEXAMETHASONE TAB [Suspect]
     Indication: MULTIPLE MYELOMA
     Dosage: 20 MG, ORAL
     Route: 048
     Dates: start: 20090818, end: 20090908
  4. FLUTICASONE PROPIONATE [Concomitant]
  5. ALLOPURINOL [Concomitant]
  6. FOSINOPRIL SODIUM [Concomitant]
  7. AMLODIPINE [Concomitant]
  8. HYZAAR [Concomitant]
  9. ASPIRIN [Concomitant]
  10. ADVAIR DISKUS (FLUTICASONE PROPIONATE, SALMETEROL XINAFOATE) [Concomitant]
  11. FEXFENADINE (FEXFENADINE) [Concomitant]
  12. CARVEDILOL [Concomitant]
  13. NEXIUM [Concomitant]
  14. VYTORIN [Concomitant]
  15. ISOSORBIDE MONONITRATE (ISOSORBIDE MONOITRATE) [Concomitant]

REACTIONS (20)
  - BACK PAIN [None]
  - BLOOD ALKALINE PHOSPHATASE INCREASED [None]
  - BLOOD CREATININE INCREASED [None]
  - BLOOD MAGNESIUM INCREASED [None]
  - BLOOD PRESSURE DIASTOLIC DECREASED [None]
  - BLOOD SODIUM DECREASED [None]
  - BLOOD UREA INCREASED [None]
  - CARDIOMEGALY [None]
  - CONSTIPATION [None]
  - DRUG EFFECT DECREASED [None]
  - DYSPNOEA [None]
  - FATIGUE [None]
  - HAEMATOCRIT DECREASED [None]
  - HAEMOGLOBIN DECREASED [None]
  - HYPOAESTHESIA [None]
  - NEUROPATHY PERIPHERAL [None]
  - OEDEMA [None]
  - PAIN [None]
  - PNEUMONIA [None]
  - WHITE BLOOD CELL COUNT INCREASED [None]
